FAERS Safety Report 11233062 (Version 1)
Quarter: 2015Q3

REPORT INFORMATION
  Report Type: Report from Study
  Country: GB (occurrence: GB)
  Receive Date: 20150701
  Receipt Date: 20150701
  Transmission Date: 20151125
  Serious: Yes (Death, Other)
  Sender: FDA-Public Use
  Company Number: PHFR2015GB004910

PATIENT
  Age: 7 Year

DRUGS (1)
  1. LBH589 [Suspect]
     Active Substance: PANOBINOSTAT
     Indication: BRAIN STEM GLIOMA
     Dosage: 10 MG, UNK (11.8MG/M2/DOSE)
     Route: 065

REACTIONS (3)
  - Death [Fatal]
  - Off label use [Unknown]
  - General physical health deterioration [Unknown]
